FAERS Safety Report 10073473 (Version 1)
Quarter: 2014Q2

REPORT INFORMATION
  Report Type: Spontaneous
  Country: US (occurrence: US)
  Receive Date: 20140411
  Receipt Date: 20140411
  Transmission Date: 20141212
  Serious: Yes (Other)
  Sender: FDA-Public Use
  Company Number: US-ACTAVIS-2014-06880

PATIENT
  Age: 67 Year
  Sex: Female

DRUGS (6)
  1. ACETYLSALICYLIC ACID (UNKNOWN) [Suspect]
     Indication: PRODUCT USED FOR UNKNOWN INDICATION
     Dosage: 650 MG,
     Route: 065
  2. NAPROXEN (WATSON LABORATORIES) [Suspect]
     Indication: PRODUCT USED FOR UNKNOWN INDICATION
     Dosage: 440 MG,
     Route: 065
  3. MONTELUKAST [Concomitant]
     Indication: ASTHMA
     Dosage: UNK
     Route: 065
  4. FORMOTEROL W/BUDESONIDE [Concomitant]
     Indication: ASTHMA
     Dosage: 4.5/160 TWICE DAILY
     Route: 065
  5. ZILEUTON [Concomitant]
     Indication: ASTHMA
     Dosage: 1200 MG, BID
     Route: 065
  6. MOMETASONE [Concomitant]
     Indication: ASTHMA
     Dosage: UNK
     Route: 045

REACTIONS (2)
  - Asthma [Unknown]
  - Aspirin-exacerbated respiratory disease [Unknown]
